FAERS Safety Report 18757180 (Version 1)
Quarter: 2021Q1

REPORT INFORMATION
  Report Type: Spontaneous
  Country: NZ (occurrence: NZ)
  Receive Date: 20210119
  Receipt Date: 20210119
  Transmission Date: 20210419
  Serious: Yes (Other)
  Sender: FDA-Public Use
  Company Number: NZ-MYLANLABS-2021M1003052

PATIENT
  Age: 6 Decade
  Sex: Female

DRUGS (3)
  1. ZOLEDRONIC ACID [Suspect]
     Active Substance: ZOLEDRONIC ACID
     Dosage: 4 MILLIGRAM, 12 MONTHS...
     Route: 042
  2. VITAMIN D                          /00107901/ [Concomitant]
     Active Substance: ERGOCALCIFEROL
     Indication: PALLIATIVE CARE
     Route: 065
  3. ZOLEDRONIC ACID [Suspect]
     Active Substance: ZOLEDRONIC ACID
     Indication: BONE LESION
     Dosage: 4 MILLIGRAM
     Route: 042

REACTIONS (5)
  - Hypophosphataemic osteomalacia [Recovered/Resolved]
  - Tibia fracture [Recovered/Resolved]
  - Rib fracture [Recovered/Resolved]
  - Condition aggravated [Recovered/Resolved]
  - Femur fracture [Recovered/Resolved]
